FAERS Safety Report 10585586 (Version 2)
Quarter: 2014Q4

REPORT INFORMATION
  Report Type: Spontaneous
  Country: FR (occurrence: FR)
  Receive Date: 20141114
  Receipt Date: 20141212
  Transmission Date: 20150529
  Serious: Yes (Hospitalization, Other)
  Sender: FDA-Public Use
  Company Number: FR-GLAXOSMITHKLINE-FR2014GSK017844

PATIENT
  Age: 74 Year
  Sex: Male

DRUGS (7)
  1. ZELITREX [Suspect]
     Active Substance: VALACYCLOVIR HYDROCHLORIDE
     Indication: PROPHYLAXIS
     Dosage: 1 UNK, QD
     Route: 048
  2. KARDEGIC [Suspect]
     Active Substance: ASPIRIN LYSINE
     Indication: THROMBOSIS PROPHYLAXIS
     Dosage: UNK
     Route: 048
     Dates: start: 20140422, end: 20141004
  3. ARANESP [Suspect]
     Active Substance: DARBEPOETIN ALFA
     Indication: ANAEMIA
     Dosage: 150 UG, WE
     Route: 058
     Dates: start: 201201, end: 20141003
  4. DIFFU K [Concomitant]
     Active Substance: POTASSIUM CHLORIDE
     Dosage: 1 UNK, BID
  5. POMALIDOMIDE [Suspect]
     Active Substance: POMALIDOMIDE
     Indication: PLASMA CELL MYELOMA
     Dosage: 4 MG, Z
     Route: 048
     Dates: start: 20140422, end: 20141006
  6. DEXAMETHASONE. [Suspect]
     Active Substance: DEXAMETHASONE
     Indication: PLASMA CELL MYELOMA
     Dosage: 20 MG, WE
     Route: 048
     Dates: start: 20140422, end: 20141002
  7. PERMIXON [Suspect]
     Active Substance: SAW PALMETTO
     Indication: BENIGN PROSTATIC HYPERPLASIA
     Dosage: 1 UNK, BID
     Route: 048

REACTIONS (4)
  - Colitis ischaemic [Not Recovered/Not Resolved]
  - Diverticulitis [Unknown]
  - Thrombosis [Unknown]
  - Rectal haemorrhage [Recovered/Resolved]

NARRATIVE: CASE EVENT DATE: 20141004
